FAERS Safety Report 8863132 (Version 1)
Quarter: 2012Q4

REPORT INFORMATION
  Report Type: 
  Country: CN (occurrence: CN)
  Receive Date: 20121026
  Receipt Date: 20121026
  Transmission Date: 20130627
  Serious: Yes (Other)
  Sender: FDA-Public Use
  Company Number: CN-ROCHE-1149052

PATIENT

DRUGS (1)
  1. PEGASYS [Suspect]
     Indication: HEPATITIS B
     Route: 058

REACTIONS (3)
  - Hepatitis B DNA increased [Recovering/Resolving]
  - Hepatitis B surface antigen positive [Unknown]
  - Drug ineffective [Unknown]
